FAERS Safety Report 6832967-6 (Version None)
Quarter: 2010Q3

REPORT INFORMATION
  Report Type: 
  Country: None (occurrence: None)
  Receive Date: 20100712
  Receipt Date: 20070321
  Transmission Date: 20110219
  Serious: No
  Sender: FDA-Public Use
  Company Number: US-PFIZER INC-2007024305

PATIENT
  Sex: Female
  Weight: 95.25 kg

DRUGS (5)
  1. CHANTIX [Suspect]
     Indication: SMOKING CESSATION THERAPY
  2. XANAX [Concomitant]
  3. ALBUTEROL [Concomitant]
  4. PROTONIX [Concomitant]
  5. WELLBUTRIN [Concomitant]

REACTIONS (1)
  - MYALGIA [None]
